FAERS Safety Report 6768255-6 (Version None)
Quarter: 2010Q2

REPORT INFORMATION
  Report Type: 
  Country: None (occurrence: None)
  Receive Date: 20100614
  Receipt Date: 20100602
  Transmission Date: 20101027
  Serious: Yes (Hospitalization)
  Sender: FDA-Public Use
  Company Number: JP-ASTRAZENECA-2010SE20525

PATIENT
  Age: 75 Year
  Sex: Male

DRUGS (2)
  1. MEROPEN [Suspect]
     Indication: PYREXIA
     Route: 042
     Dates: start: 20100418, end: 20100422
  2. SULPERAZON [Concomitant]
     Indication: PYREXIA
     Route: 042
     Dates: start: 20100415, end: 20100418

REACTIONS (1)
  - HEPATIC FUNCTION ABNORMAL [None]
